FAERS Safety Report 6067404-5 (Version None)
Quarter: 2009Q1

REPORT INFORMATION
  Report Type: 
  Country: None (occurrence: None)
  Receive Date: 20090205
  Receipt Date: 20090128
  Transmission Date: 20090719
  Serious: Yes (Death, Other)
  Sender: FDA-Public Use
  Company Number: SE-PFIZER INC-2009155090

PATIENT

DRUGS (10)
  1. LYRICA [Suspect]
     Indication: PAIN
     Dosage: 100 MG, 1X/DAY
     Route: 048
     Dates: start: 20080201, end: 20081001
  2. LYRICA [Suspect]
     Indication: GENERALISED ANXIETY DISORDER
  3. LYRICA [Suspect]
     Indication: SLEEP DISORDER
  4. LEVOTHYROXINE SODIUM [Concomitant]
     Dosage: UNK
  5. SIFROL [Concomitant]
     Dosage: UNK
  6. TRAMADOL [Concomitant]
     Dosage: UNK
  7. TOLTERODINE TARTRATE [Concomitant]
     Dosage: UNK
  8. CALCIUM [Concomitant]
     Dosage: UNK
  9. PROPAVAN [Concomitant]
     Dosage: UNK
  10. TRYPTIZOL [Concomitant]
     Dosage: UNK

REACTIONS (2)
  - DEATH [None]
  - SYNCOPE [None]
